FAERS Safety Report 7088511-4 (Version None)
Quarter: 2010Q4

REPORT INFORMATION
  Report Type: 
  Country: None (occurrence: None)
  Receive Date: 20101108
  Receipt Date: 20101101
  Transmission Date: 20110411
  Serious: Yes (Other)
  Sender: FDA-Public Use
  Company Number: US-PFIZER INC-2010139082

PATIENT
  Sex: Female

DRUGS (2)
  1. LYRICA [Suspect]
     Indication: MYOFASCIAL PAIN SYNDROME
     Dosage: 200 MG, AT NIGHT
     Route: 048
  2. IBUPROFEN [Suspect]
     Indication: PAIN
     Dosage: UNK
     Route: 048

REACTIONS (7)
  - ATTENTION DEFICIT/HYPERACTIVITY DISORDER [None]
  - DISTURBANCE IN ATTENTION [None]
  - DRUG INEFFECTIVE [None]
  - FEELING ABNORMAL [None]
  - INSOMNIA [None]
  - MYALGIA [None]
  - PAIN [None]
